FAERS Safety Report 7706037-9 (Version None)
Quarter: 2011Q3

REPORT INFORMATION
  Report Type: 
  Country: None (occurrence: None)
  Receive Date: 20110824
  Receipt Date: 20110819
  Transmission Date: 20111222
  Serious: Yes (Death, Other)
  Sender: FDA-Public Use
  Company Number: PHFR2011GB04806

PATIENT
  Sex: Female

DRUGS (1)
  1. CLOZAPINE [Suspect]
     Indication: SCHIZOPHRENIA
     Route: 048
     Dates: start: 20110722, end: 20110807

REACTIONS (7)
  - DEATH [None]
  - MYOCARDITIS [None]
  - MENTAL IMPAIRMENT [None]
  - TROPONIN INCREASED [None]
  - SELF-INDUCED VOMITING [None]
  - CHOKING [None]
  - TACHYCARDIA [None]
